FAERS Safety Report 22361444 (Version 3)
Quarter: 2023Q2

REPORT INFORMATION
  Report Type: Report from Study
  Country: US (occurrence: US)
  Receive Date: 20230524
  Receipt Date: 20230630
  Transmission Date: 20230721
  Serious: Yes (Other)
  Sender: FDA-Public Use
  Company Number: US-TAKEDA-2020TUS022887

PATIENT

DRUGS (1)
  1. VEDOLIZUMAB [Suspect]
     Active Substance: VEDOLIZUMAB
     Indication: Colitis ulcerative
     Dosage: 300 MILLIGRAM
     Route: 042

REACTIONS (9)
  - Pneumonia [Unknown]
  - Respiratory tract oedema [Unknown]
  - Feeding disorder [Unknown]
  - Frequent bowel movements [Unknown]
  - Chest discomfort [Unknown]
  - Hypoaesthesia [Unknown]
  - Pancreatic disorder [Unknown]
  - Product dose omission issue [Unknown]
  - Dyspnoea [Unknown]
